FAERS Safety Report 21973407 (Version 2)
Quarter: 2023Q1

REPORT INFORMATION
  Report Type: Report from Study
  Country: US (occurrence: US)
  Receive Date: 20230209
  Receipt Date: 20230213
  Transmission Date: 20230418
  Serious: No
  Sender: FDA-Public Use
  Company Number: US-SA-SAC20230208000771

PATIENT
  Age: 68 Year
  Sex: Female

DRUGS (1)
  1. DUPILUMAB [Suspect]
     Active Substance: DUPILUMAB
     Indication: Dermatitis atopic
     Dosage: 300 MG, QOW
     Route: 058
     Dates: start: 20230119, end: 20230209

REACTIONS (7)
  - Visual impairment [Unknown]
  - Ocular hyperaemia [Recovered/Resolved]
  - Pain in extremity [Unknown]
  - Eye swelling [Recovered/Resolved]
  - Vision blurred [Recovered/Resolved]
  - Dry eye [Recovered/Resolved]
  - Arthralgia [Recovered/Resolved]

NARRATIVE: CASE EVENT DATE: 20230101
